FAERS Safety Report 18510848 (Version 1)
Quarter: 2020Q4

REPORT INFORMATION
  Report Type: Spontaneous
  Country: US (occurrence: US)
  Receive Date: 20201116
  Receipt Date: 20201116
  Transmission Date: 20210114
  Serious: Yes (Life-Threatening, Disabling, Other)
  Sender: FDA-Public Use
  Company Number: None

PATIENT
  Age: 44 Year
  Sex: Male
  Weight: 130.5 kg

DRUGS (4)
  1. RISPERDAL M-TAB [Suspect]
     Active Substance: RISPERIDONE
  2. VALERIAN ROOT [Concomitant]
     Active Substance: VALERIAN
  3. RISPERDAL CONSTA [Suspect]
     Active Substance: RISPERIDONE
  4. RISPERDAL [Suspect]
     Active Substance: RISPERIDONE
     Indication: PRODUCT USED FOR UNKNOWN INDICATION
     Dosage: ?          QUANTITY:200 TABLET(S);?
     Dates: start: 20151130, end: 20201116

REACTIONS (18)
  - Abnormal behaviour [None]
  - Decreased appetite [None]
  - Chills [None]
  - Hypopnoea [None]
  - Headache [None]
  - Muscle spasms [None]
  - Confusional state [None]
  - Dizziness [None]
  - Erectile dysfunction [None]
  - Somnolence [None]
  - Cold sweat [None]
  - Haemorrhage [None]
  - Heart rate abnormal [None]
  - Dyskinesia [None]
  - Thirst [None]
  - Pallor [None]
  - Feeling abnormal [None]
  - Contusion [None]

NARRATIVE: CASE EVENT DATE: 20201116
